FAERS Safety Report 9120910 (Version 2)
Quarter: 2013Q2

REPORT INFORMATION
  Report Type: Spontaneous
  Country: US (occurrence: US)
  Receive Date: 20130226
  Receipt Date: 20130619
  Transmission Date: 20140414
  Serious: Yes (Other)
  Sender: FDA-Public Use
  Company Number: US-009507513-1302USA009935

PATIENT
  Sex: Female

DRUGS (1)
  1. INVANZ [Suspect]
     Dosage: ONCE DAILY, QD
     Route: 042

REACTIONS (1)
  - Convulsion [Recovered/Resolved]
